FAERS Safety Report 7688488-4 (Version None)
Quarter: 2011Q3

REPORT INFORMATION
  Report Type: 
  Country: None (occurrence: None)
  Receive Date: 20110817
  Receipt Date: 20110810
  Transmission Date: 20111222
  Serious: Yes (Life-Threatening, Hospitalization)
  Sender: FDA-Public Use
  Company Number: US-ROCHE-796857

PATIENT
  Age: 40 Year
  Sex: Female
  Weight: 91.8 kg

DRUGS (12)
  1. BEVACIZUMAB [Suspect]
     Indication: BREAST CANCER
     Dosage: OVER 30-90 MINUTES ON 1 DAY OF WEEKS 1,3,5,7,9,11,13,15 AND 17
     Route: 042
     Dates: start: 20110317
  2. LOVENOX [Concomitant]
  3. NEUPOGEN [Concomitant]
  4. ZOFRAN [Concomitant]
  5. CYCLOPHOSPHAMIDE [Suspect]
     Indication: BREAST CANCER
     Dosage: OVER 5-30 MINUTES ON DAY 1 OF WEEKS 13, 15,17,19
     Route: 042
     Dates: start: 20110317
  6. CARBOPLATIN [Suspect]
     Indication: BREAST CANCER
     Dosage: AUC 6 OVER 30 MIN ON DAY 1 OF WKS 1, 4, 7 AND 10
     Route: 042
     Dates: start: 20110317
  7. PACLITAXEL [Suspect]
     Indication: BREAST CANCER
     Dosage: OVER 1HOUR ON 1 DAY OF WEEKS 1-12
     Route: 042
     Dates: start: 20110317
  8. PROTONIX [Concomitant]
  9. INSULIN [Concomitant]
  10. BACLOFEN [Concomitant]
  11. DOXORUBICIN HCL [Suspect]
     Indication: BREAST CANCER
     Dosage: OVER 5-10 MINUTES ON DAY 1 OF WEEKS 13, 15,17,19
     Route: 042
     Dates: start: 20110317
  12. ATIVAN [Concomitant]

REACTIONS (5)
  - VOMITING [None]
  - THROMBOTIC THROMBOCYTOPENIC PURPURA [None]
  - FATIGUE [None]
  - NAUSEA [None]
  - WHITE BLOOD CELL COUNT DECREASED [None]
